FAERS Safety Report 5520091-4 (Version None)
Quarter: 2007Q4

REPORT INFORMATION
  Report Type: 
  Country: None (occurrence: None)
  Receive Date: 20071116
  Receipt Date: 20071113
  Transmission Date: 20080405
  Serious: Yes (Death)
  Sender: FDA-Public Use
  Company Number: JP-SHR-JP-2007-017005

PATIENT
  Age: 90 Year
  Sex: Female
  Weight: 63 kg

DRUGS (12)
  1. FLUDARA [Suspect]
     Indication: CHRONIC LYMPHOCYTIC LEUKAEMIA
     Dosage: 30 MG, CYCLE X 5D
     Route: 042
     Dates: start: 20070220, end: 20070224
  2. FLUDARA [Suspect]
     Dosage: 25.05 MG, 1X/DAY
     Route: 042
     Dates: start: 20070404, end: 20070407
  3. PREDNISOLONE [Concomitant]
     Indication: ANAEMIA HAEMOLYTIC AUTOIMMUNE
     Dosage: 40 MG, 30 MG, 20 MG, 10 MG, 5 MG
     Route: 048
     Dates: start: 20070219, end: 20070406
  4. ADALAT [Concomitant]
     Indication: HYPERTENSION
     Dosage: 20 MG, 1X/DAY
     Route: 048
     Dates: start: 20070215, end: 20070419
  5. TENORMIN [Concomitant]
     Indication: HYPERTENSION
     Dosage: 50 MG, 1X/DAY
     Route: 048
     Dates: start: 20070215, end: 20070419
  6. NU-LOTAN [Concomitant]
     Indication: HYPERTENSION
     Dosage: 25 MG, 1X/DAY
     Route: 048
     Dates: start: 20070215, end: 20070419
  7. SUNRYTHM [Concomitant]
     Dosage: 150 MG, 1X/DAY
     Route: 048
     Dates: start: 20070215, end: 20070419
  8. CEROCRAL [Concomitant]
     Dosage: 60 MG, 1X/DAY
     Route: 048
     Dates: start: 20070215, end: 20070419
  9. MEVALOTIN [Concomitant]
     Indication: HYPERLIPIDAEMIA
     Dosage: 10 MG, 1X/DAY
     Route: 048
     Dates: start: 20070215, end: 20070419
  10. ALLOPURINOL [Concomitant]
     Indication: HYPERURICAEMIA
     Dosage: 300 MG, 1X/DAY
     Route: 048
     Dates: start: 20070216, end: 20070306
  11. DIFLUCAN [Concomitant]
     Indication: INFECTION PROPHYLAXIS
     Dosage: 200 MG, 1X/DAY
     Route: 048
     Dates: start: 20070315, end: 20070320
  12. BACTRIM [Concomitant]
     Indication: INFECTION PROPHYLAXIS
     Dosage: 1 TAB(S), 1X/DAY
     Route: 048
     Dates: start: 20070315, end: 20070320

REACTIONS (1)
  - CARDIAC FAILURE [None]
